FAERS Safety Report 23327909 (Version 2)
Quarter: 2024Q1

REPORT INFORMATION
  Report Type: Report from Study
  Country: US (occurrence: US)
  Receive Date: 20231221
  Receipt Date: 20240221
  Transmission Date: 20240409
  Serious: No
  Sender: FDA-Public Use
  Company Number: US-BRISTOL-MYERS SQUIBB COMPANY-2023-185846

PATIENT
  Age: 73 Year
  Sex: Female

DRUGS (1)
  1. ELIQUIS [Suspect]
     Active Substance: APIXABAN
     Indication: Thrombosis
     Dosage: TWO TABLETS TWICE A DAY
     Dates: start: 20231218

REACTIONS (2)
  - Dizziness [Unknown]
  - Urticaria [Unknown]

NARRATIVE: CASE EVENT DATE: 20231201
